FAERS Safety Report 9461413 (Version 1)
Quarter: 2013Q3

REPORT INFORMATION
  Report Type: Spontaneous
  Country: US (occurrence: None)
  Receive Date: 20130814
  Receipt Date: 20130814
  Transmission Date: 20140515
  Serious: No
  Sender: FDA-Public Use
  Company Number: None

PATIENT
  Age: 73 Year
  Sex: Female
  Weight: 108.86 kg

DRUGS (17)
  1. CYMBALTA (DULOXETINE DELAYED-RELEASE CAPSULES) [Suspect]
     Indication: PAIN
     Dosage: 1 CAPSULE
     Route: 048
     Dates: start: 20130510, end: 20130626
  2. CYMBALTA (DULOXETINE DELAYED-RELEASE CAPSULES) [Suspect]
     Indication: FIBROMYALGIA
     Dosage: 1 CAPSULE
     Route: 048
     Dates: start: 20130510, end: 20130626
  3. NEXIUM [Concomitant]
  4. COREG CR [Concomitant]
  5. ALTACE [Concomitant]
  6. MAXZIDE [Concomitant]
  7. METHOTREXATE [Concomitant]
  8. FOLIC ACID [Concomitant]
  9. CRESTOR [Concomitant]
  10. FLONASE [Concomitant]
  11. VIT D [Concomitant]
  12. CLARITIN D [Concomitant]
  13. CITRACAL MAX [Concomitant]
  14. VIT C [Concomitant]
  15. CENTRUM SILVER [Concomitant]
  16. OSTEO BI-FLEX [Concomitant]
  17. TYLENOL EXTRA STRENGTH [Concomitant]

REACTIONS (5)
  - Oral mucosal blistering [None]
  - Hyperhidrosis [None]
  - Pruritus [None]
  - Visual impairment [None]
  - Blister [None]
